FAERS Safety Report 6562307-1 (Version None)
Quarter: 2010Q1

REPORT INFORMATION
  Report Type: 
  Country: None (occurrence: None)
  Receive Date: 20100130
  Receipt Date: 20091103
  Transmission Date: 20100710
  Serious: No
  Sender: FDA-Public Use
  Company Number: US-ABBOTT-09P-163-0606639-00

PATIENT
  Sex: Female
  Weight: 104.42 kg

DRUGS (1)
  1. HUMIRA [Suspect]
     Indication: RHEUMATOID ARTHRITIS
     Route: 058
     Dates: start: 20040101

REACTIONS (7)
  - ARTHROPATHY [None]
  - FACE INJURY [None]
  - FALL [None]
  - HEAD INJURY [None]
  - NAUSEA [None]
  - RHINALGIA [None]
  - SCRATCH [None]
